FAERS Safety Report 5469135-9 (Version None)
Quarter: 2007Q3

REPORT INFORMATION
  Report Type: 
  Country: None (occurrence: None)
  Receive Date: 20070927
  Receipt Date: 20070920
  Transmission Date: 20080115
  Serious: Yes (Other)
  Sender: FDA-Public Use
  Company Number: PHBS2007SK15763

PATIENT
  Age: 77 Year
  Sex: Male

DRUGS (2)
  1. STALEVO 100 [Suspect]
     Dosage: 50 MG, QD
     Route: 065
  2. STALEVO 100 [Suspect]
     Dosage: 50 MG, BID
     Route: 065

REACTIONS (2)
  - BLINDNESS [None]
  - ERYTHEMA [None]
